FAERS Safety Report 13765425 (Version 1)
Quarter: 2017Q3

REPORT INFORMATION
  Report Type: Spontaneous
  Country: RO (occurrence: RO)
  Receive Date: 20170718
  Receipt Date: 20170718
  Transmission Date: 20171127
  Serious: Yes (Other)
  Sender: FDA-Public Use
  Company Number: RO-TEVA-785039ISR

PATIENT
  Age: 27 Year
  Sex: Male

DRUGS (3)
  1. DIAZEPAM. [Concomitant]
     Active Substance: DIAZEPAM
     Indication: SCHIZOPHRENIA
     Dosage: ADMINISTERED AT NIGHT
     Route: 048
  2. QUETIAPINE. [Suspect]
     Active Substance: QUETIAPINE
     Indication: SCHIZOPHRENIA
     Dosage: 600 MILLIGRAM DAILY; 300MG X2 ONCE DAILY
     Route: 048
     Dates: start: 20170607, end: 20170628
  3. CONVULEX [Concomitant]
     Active Substance: VALPROIC ACID
     Indication: SCHIZOPHRENIA
     Dosage: 1000 MILLIGRAM DAILY; 500MG X2 ONCE PER DAY
     Route: 048

REACTIONS (2)
  - Hallucination, auditory [Unknown]
  - Malaise [Unknown]
